FAERS Safety Report 5120949-4 (Version None)
Quarter: 2006Q4

REPORT INFORMATION
  Report Type: 
  Country: None (occurrence: None)
  Receive Date: 20061005
  Receipt Date: 20060926
  Transmission Date: 20070319
  Serious: Yes (Hospitalization)
  Sender: FDA-Public Use
  Company Number: US-ROCHE-465075

PATIENT
  Age: 63 Year
  Sex: Female
  Weight: 127 kg

DRUGS (4)
  1. BUMEX [Suspect]
     Indication: DRUG USE FOR UNKNOWN INDICATION
     Route: 065
  2. ACCUPRIL [Concomitant]
  3. ZAROXOLYN [Concomitant]
  4. HYTRIN [Concomitant]

REACTIONS (3)
  - FALL [None]
  - FOOT FRACTURE [None]
  - HUMERUS FRACTURE [None]
